FAERS Safety Report 23441527 (Version 1)
Quarter: 2024Q1

REPORT INFORMATION
  Report Type: Spontaneous
  Country: EG (occurrence: EG)
  Receive Date: 20240125
  Receipt Date: 20240125
  Transmission Date: 20240410
  Serious: Yes (Other)
  Sender: FDA-Public Use
  Company Number: EG-HIKMA PHARMACEUTICALS USA INC.-EG-H14001-24-00565

PATIENT

DRUGS (3)
  1. CARBOPLATIN [Suspect]
     Active Substance: CARBOPLATIN
     Indication: Breast cancer
     Dosage: 303 MILLIGRAM DAY 1
     Route: 041
     Dates: start: 20231206
  2. PACLITAXEL [Suspect]
     Active Substance: PACLITAXEL
     Indication: Breast cancer
     Dosage: 112 MILLIGRAM DAY 1,8,15
     Route: 041
     Dates: start: 20231206
  3. PACLITAXEL [Suspect]
     Active Substance: PACLITAXEL
     Dosage: 112 MILLIGRAM DAY 1,8,15
     Route: 041
     Dates: start: 20231226

REACTIONS (4)
  - Neuropathy peripheral [Not Recovered/Not Resolved]
  - Neutropenia [Unknown]
  - Bone pain [Not Recovered/Not Resolved]
  - White blood cell count decreased [Unknown]

NARRATIVE: CASE EVENT DATE: 20231206
